FAERS Safety Report 24466159 (Version 1)
Quarter: 2024Q4

REPORT INFORMATION
  Report Type: Report from Study
  Country: US (occurrence: US)
  Receive Date: 20241018
  Receipt Date: 20241018
  Transmission Date: 20250115
  Serious: No
  Sender: ROCHE
  Company Number: US-ROCHE-3541791

PATIENT
  Age: 66 Year
  Sex: Female
  Weight: 89.36 kg

DRUGS (12)
  1. XOLAIR [Suspect]
     Active Substance: OMALIZUMAB
     Indication: Asthma
     Dosage: RESTARTED IN 2023?LAST DOSE RECEIVED ON 05/APR/2024
     Route: 058
  2. XOLAIR [Suspect]
     Active Substance: OMALIZUMAB
  3. LEVOTHYROXINE [Concomitant]
     Active Substance: LEVOTHYROXINE
     Dosage: 50 UG
     Route: 048
  4. FLUTICASONE [Concomitant]
     Active Substance: FLUTICASONE
     Dosage: 50 UG
  5. ESTRADIOL [Concomitant]
     Active Substance: ESTRADIOL
     Indication: Vulvovaginal dryness
     Dosage: 0.01% CREAM ;ONGOING: YES
     Route: 067
  6. EPINEPHRINE [Concomitant]
     Active Substance: EPINEPHRINE
     Indication: Hypersensitivity
     Dosage: PEN?NEVER USED ;ONGOING: YES
     Route: 058
  7. TRELEGY ELLIPTA [Concomitant]
     Active Substance: FLUTICASONE FUROATE\UMECLIDINIUM BROMIDE\VILANTEROL TRIFENATATE
     Indication: Asthma
     Dosage: 200 UG
     Route: 055
     Dates: start: 202310
  8. ALBUTEROL [Concomitant]
     Active Substance: ALBUTEROL
     Route: 055
  9. SYMBICORT [Concomitant]
     Active Substance: BUDESONIDE\FORMOTEROL FUMARATE DIHYDRATE
  10. VITAMIN D3 [Concomitant]
     Active Substance: CHOLECALCIFEROL
  11. MINERALS\VITAMINS [Concomitant]
     Active Substance: MINERALS\VITAMINS
  12. OCUVITE [Concomitant]
     Active Substance: VITAMINS

REACTIONS (2)
  - Osteoarthritis [Not Recovered/Not Resolved]
  - Drug ineffective [Unknown]
